FAERS Safety Report 17065959 (Version 2)
Quarter: 2019Q4

REPORT INFORMATION
  Report Type: Spontaneous
  Country: GB (occurrence: GB)
  Receive Date: 20191122
  Receipt Date: 20191126
  Transmission Date: 20200122
  Serious: Yes (Hospitalization, Other)
  Sender: FDA-Public Use
  Company Number: GB-JNJFOC-20191128905

PATIENT
  Age: 66 Year
  Sex: Female

DRUGS (1)
  1. SIMPONI [Suspect]
     Active Substance: GOLIMUMAB
     Indication: PSORIATIC ARTHROPATHY
     Route: 058

REACTIONS (5)
  - Hospitalisation [Unknown]
  - Product dose omission [Unknown]
  - Fall [Unknown]
  - Psoriatic arthropathy [Unknown]
  - Lethargy [Unknown]

NARRATIVE: CASE EVENT DATE: 201911
